FAERS Safety Report 8553157-5 (Version None)
Quarter: 2012Q3

REPORT INFORMATION
  Report Type: 
  Country: None (occurrence: None)
  Receive Date: 20120731
  Receipt Date: 20120726
  Transmission Date: 20120928
  Serious: Yes (Death, Hospitalization, Other)
  Sender: FDA-Public Use
  Company Number: US-PFIZER INC-2012181810

PATIENT
  Sex: Female
  Weight: 73.469 kg

DRUGS (1)
  1. LYRICA [Suspect]
     Indication: FIBROMYALGIA
     Dosage: 75 MG, 2X/DAY
     Route: 048

REACTIONS (3)
  - THROMBOSIS MESENTERIC VESSEL [None]
  - SMALL INTESTINAL OBSTRUCTION [None]
  - ABDOMINAL PAIN UPPER [None]
